FAERS Safety Report 6430297-8 (Version None)
Quarter: 2009Q4

REPORT INFORMATION
  Report Type: 
  Country: None (occurrence: None)
  Receive Date: 20091106
  Receipt Date: 20091031
  Transmission Date: 20100525
  Serious: Yes (Hospitalization)
  Sender: FDA-Public Use
  Company Number: JP-ASTRAZENECA-2009SE24324

PATIENT
  Age: 41 Year
  Sex: Male

DRUGS (2)
  1. CRESTOR [Suspect]
     Indication: TYPE IIA HYPERLIPIDAEMIA
     Route: 048
     Dates: start: 20090701, end: 20090714
  2. CRESTOR [Suspect]
     Route: 048
     Dates: start: 20090715, end: 20090812

REACTIONS (2)
  - DIARRHOEA [None]
  - RENAL FAILURE ACUTE [None]
